FAERS Safety Report 6753882-2 (Version None)
Quarter: 2010Q2

REPORT INFORMATION
  Report Type: 
  Country: None (occurrence: None)
  Receive Date: 20100603
  Receipt Date: 20100525
  Transmission Date: 20101027
  Serious: Yes (Other)
  Sender: FDA-Public Use
  Company Number: GB-AMGEN-QUU414030

PATIENT
  Sex: Female

DRUGS (1)
  1. ARANESP [Suspect]
     Indication: DRUG USE FOR UNKNOWN INDICATION
     Dates: start: 20100415

REACTIONS (4)
  - GINGIVAL BLEEDING [None]
  - HYPERSENSITIVITY [None]
  - SKIN DISCOLOURATION [None]
  - SWELLING FACE [None]
